FAERS Safety Report 11835522 (Version 1)
Quarter: 2015Q4

REPORT INFORMATION
  Report Type: Spontaneous
  Country: US (occurrence: None)
  Receive Date: 20151214
  Receipt Date: 20151214
  Transmission Date: 20160305
  Serious: Yes (Life-Threatening, Disabling)
  Sender: FDA-Public Use
  Company Number: None

PATIENT
  Age: 74 Year
  Sex: Male
  Weight: 68.04 kg

DRUGS (3)
  1. MULTI-VITAMIN [Concomitant]
     Active Substance: .ALPHA.-TOCOPHEROL ACETATE, DL-\ASCORBIC ACID\CYANOCOBALAMIN\FLUORIDE ION\FOLIC ACID\NIACIN\PYRIDOXINE\RIBOFLAVIN\THIAMINE\VITAMIN A\VITAMIN D
  2. COQ10 [Concomitant]
     Active Substance: UBIDECARENONE
  3. ACYCLOVIR UNKNOWN [Suspect]
     Active Substance: ACYCLOVIR
     Indication: HERPES ZOSTER
     Route: 048

REACTIONS (7)
  - Asthenia [None]
  - Lymphadenopathy [None]
  - White blood cell count increased [None]
  - Fatigue [None]
  - Dizziness [None]
  - Vision blurred [None]
  - Chronic lymphocytic leukaemia [None]

NARRATIVE: CASE EVENT DATE: 20140919
